FAERS Safety Report 12425170 (Version 1)
Quarter: 2016Q2

REPORT INFORMATION
  Report Type: Report from Study
  Country: DE (occurrence: CO)
  Receive Date: 20160601
  Receipt Date: 20160601
  Transmission Date: 20160815
  Serious: Yes (Death)
  Sender: FDA-Public Use
  Company Number: DE-ACTELION-A-NJ2016-136942

PATIENT
  Age: 60 Year
  Sex: Female

DRUGS (1)
  1. VENTAVIS [Suspect]
     Active Substance: ILOPROST
     Indication: PULMONARY HYPERTENSION
     Dosage: 1 DF, QID
     Route: 055
     Dates: start: 20150501, end: 20160508

REACTIONS (2)
  - Cardio-respiratory arrest [Fatal]
  - Product use issue [Unknown]

NARRATIVE: CASE EVENT DATE: 20160508
